FAERS Safety Report 10723955 (Version 1)
Quarter: 2015Q1

REPORT INFORMATION
  Report Type: Spontaneous
  Country: US (occurrence: US)
  Receive Date: 20150120
  Receipt Date: 20150120
  Transmission Date: 20150721
  Serious: Yes (Hospitalization, Other)
  Sender: FDA-Public Use
  Company Number: US-ABBVIE-15P-163-1333111-00

PATIENT
  Age: 41 Year
  Sex: Male

DRUGS (2)
  1. ANDROGEL [Suspect]
     Active Substance: TESTOSTERONE
     Indication: BLOOD TESTOSTERONE DECREASED
     Route: 061
     Dates: start: 201201, end: 201202
  2. ANDRODERM [Suspect]
     Active Substance: TESTOSTERONE
     Indication: BLOOD TESTOSTERONE DECREASED
     Route: 061
     Dates: start: 201202, end: 201207

REACTIONS (9)
  - Chest pain [Unknown]
  - Physical disability [Unknown]
  - Impaired work ability [Unknown]
  - Anxiety [Unknown]
  - Coronary artery disease [Unknown]
  - Injury [Unknown]
  - Economic problem [Unknown]
  - Emotional disorder [Unknown]
  - Pain [Unknown]

NARRATIVE: CASE EVENT DATE: 20120528
